FAERS Safety Report 8313957-3 (Version None)
Quarter: 2012Q2

REPORT INFORMATION
  Report Type: 
  Country: None (occurrence: None)
  Receive Date: 20120426
  Receipt Date: 20120416
  Transmission Date: 20120825
  Serious: Yes (Other)
  Sender: FDA-Public Use
  Company Number: ES-JNJFOC-20120411255

PATIENT
  Age: 86 Year
  Sex: Female

DRUGS (1)
  1. TRAMADOL HYDROCHLORIDE [Suspect]
     Indication: BACK PAIN
     Dosage: 2 PER DAY
     Route: 048
     Dates: start: 20110407, end: 20110506

REACTIONS (5)
  - HEADACHE [None]
  - DYSARTHRIA [None]
  - SOMNOLENCE [None]
  - CONFUSIONAL STATE [None]
  - GAIT DISTURBANCE [None]
